FAERS Safety Report 11180714 (Version 4)
Quarter: 2015Q3

REPORT INFORMATION
  Report Type: Spontaneous
  Country: IT (occurrence: IT)
  Receive Date: 20150611
  Receipt Date: 20150915
  Transmission Date: 20151125
  Serious: Yes (Hospitalization)
  Sender: FDA-Public Use
  Company Number: IT-009507513-1506ITA004218

PATIENT
  Age: 65 Year
  Sex: Female
  Weight: 60 kg

DRUGS (5)
  1. RANOLAZINE HYDROCHLORIDE [Concomitant]
     Active Substance: RANOLAZINE HYDROCHLORIDE
     Dosage: UNK
     Route: 048
  2. REBETOL [Suspect]
     Active Substance: RIBAVIRIN
     Indication: CHRONIC HEPATITIS C
     Dosage: 600 MG, DAILY
     Route: 048
     Dates: start: 20150330, end: 20150423
  3. REBETOL [Suspect]
     Active Substance: RIBAVIRIN
     Dosage: 1000 MG, DAILY
     Route: 048
     Dates: start: 20140307, end: 20150330
  4. PROPRANOLOL HYDROCHLORIDE. [Concomitant]
     Active Substance: PROPRANOLOL HYDROCHLORIDE
     Indication: VARICES OESOPHAGEAL
     Dosage: UNK
     Route: 048
  5. SOVALDI [Suspect]
     Active Substance: SOFOSBUVIR
     Indication: CHRONIC HEPATITIS C
     Dosage: 400 MG, DAILY
     Route: 048
     Dates: start: 20150307, end: 20150423

REACTIONS (1)
  - Acute hepatic failure [Recovering/Resolving]

NARRATIVE: CASE EVENT DATE: 20150423
